FAERS Safety Report 5875952-3 (Version None)
Quarter: 2008Q3

REPORT INFORMATION
  Report Type: 
  Country: None (occurrence: None)
  Receive Date: 20080905
  Receipt Date: 20080821
  Transmission Date: 20090109
  Serious: Yes (Disabling)
  Sender: FDA-Public Use
  Company Number: 2008S1015489

PATIENT
  Age: 60 Year
  Sex: Male

DRUGS (1)
  1. OMEPRAZOLE [Suspect]
     Indication: DYSPEPSIA
     Dosage: 40 MG; ORAL
     Route: 048
     Dates: start: 20060301, end: 20080806

REACTIONS (1)
  - DEAFNESS UNILATERAL [None]
